FAERS Safety Report 4767151-3 (Version None)
Quarter: 2005Q3

REPORT INFORMATION
  Report Type: 
  Country: None (occurrence: None)
  Receive Date: 20050913
  Receipt Date: 20050905
  Transmission Date: 20060218
  Serious: Yes (Hospitalization, Other)
  Sender: FDA-Public Use
  Company Number: PHFR2005GB02950

PATIENT
  Age: 82 Year
  Sex: Female

DRUGS (10)
  1. PERINDOPRIL [Suspect]
     Dosage: 4 MG, QD
     Route: 048
     Dates: start: 20050101, end: 20050617
  2. WARFARIN [Concomitant]
     Route: 048
  3. ALBUTEROL SULFATE HFA [Concomitant]
     Dosage: 5 MG, QID
     Route: 065
  4. PANTOPRAZOLE [Concomitant]
     Dosage: 40 MG, QD
     Route: 048
  5. PREDNISOLONE [Concomitant]
     Dosage: 5 MG, QD
     Route: 048
  6. DOXAZOSIN [Concomitant]
     Dosage: 4 MG, BID
     Route: 048
  7. AMLODIPINE [Concomitant]
     Dosage: 5 MG, QD
     Route: 048
  8. BENDROFLUAZIDE [Concomitant]
     Dosage: 2.5 MG, QD
     Route: 065
  9. CALCICHEW D3 [Concomitant]
     Dosage: 1 OT, BID
     Route: 065
  10. DICLOFENAC [Suspect]
     Indication: ARTHRITIS
     Dosage: 50 MG, BID
     Route: 048
     Dates: start: 20050520, end: 20050617

REACTIONS (8)
  - BLOOD CREATINE INCREASED [None]
  - BLOOD POTASSIUM INCREASED [None]
  - BLOOD UREA INCREASED [None]
  - C-REACTIVE PROTEIN INCREASED [None]
  - MALAISE [None]
  - NAUSEA [None]
  - RENAL FAILURE [None]
  - URINARY TRACT INFECTION [None]
